FAERS Safety Report 22091269 (Version 1)
Quarter: 2023Q1

REPORT INFORMATION
  Report Type: Spontaneous
  Country: US (occurrence: US)
  Receive Date: 20230314
  Receipt Date: 20230314
  Transmission Date: 20230418
  Serious: Yes (Hospitalization, Other)
  Sender: FDA-Public Use
  Company Number: US-NOVOPROD-1036642

PATIENT
  Sex: Female

DRUGS (3)
  1. OZEMPIC [Suspect]
     Active Substance: SEMAGLUTIDE
     Indication: Cerebrovascular accident
     Dosage: 0.8 MG
     Route: 058
     Dates: start: 2021
  2. OZEMPIC [Suspect]
     Active Substance: SEMAGLUTIDE
     Indication: Myocardial infarction
  3. OZEMPIC [Suspect]
     Active Substance: SEMAGLUTIDE
     Indication: Cardiac failure
     Dosage: UNK
     Route: 058
     Dates: start: 201904, end: 2021

REACTIONS (8)
  - Hypotension [Recovered/Resolved]
  - Haemorrhoids [Recovered/Resolved]
  - Dehydration [Not Recovered/Not Resolved]
  - Chromaturia [Recovered/Resolved]
  - Weight decreased [Recovered/Resolved]
  - Constipation [Recovered/Resolved]
  - Off label use [Unknown]
  - Off label use [Unknown]

NARRATIVE: CASE EVENT DATE: 20190401
